FAERS Safety Report 11026611 (Version 25)
Quarter: 2018Q1

REPORT INFORMATION
  Report Type: Report from Study
  Country: CA (occurrence: CA)
  Receive Date: 20150414
  Receipt Date: 20180209
  Transmission Date: 20180508
  Serious: Yes (Death, Hospitalization, Other)
  Sender: FDA-Public Use
  Company Number: PHHY2014CA100608

PATIENT
  Age: 73 Year
  Sex: Male
  Weight: 65.77 kg

DRUGS (11)
  1. SANDOSTATIN [Suspect]
     Active Substance: OCTREOTIDE ACETATE
     Indication: NEUROENDOCRINE TUMOUR
     Dosage: 50 UG, ONCE/SINGLE (ONCE TEST DOSE)
     Route: 058
     Dates: start: 20140807, end: 20140807
  2. CANNABIS [Concomitant]
     Active Substance: CANNABIS SATIVA SUBSP. INDICA TOP
     Indication: PRODUCT USED FOR UNKNOWN INDICATION
     Dosage: 0.25 ML, BID
     Route: 065
     Dates: start: 2017
  3. SANDOSTATIN LAR DEPOT [Suspect]
     Active Substance: OCTREOTIDE ACETATE
     Indication: NEUROENDOCRINE TUMOUR
     Dosage: 30 MG, QMO (EVERY 28 DAYS, EVERY 4 WEEKS)
     Route: 030
     Dates: start: 20140819
  4. METHADONE [Concomitant]
     Active Substance: METHADONE HYDROCHLORIDE
     Dosage: 5 MG, QD
     Route: 065
  5. CRESTOR [Concomitant]
     Active Substance: ROSUVASTATIN CALCIUM
     Indication: PRODUCT USED FOR UNKNOWN INDICATION
     Dosage: UNK
     Route: 065
  6. METHADONE [Concomitant]
     Active Substance: METHADONE HYDROCHLORIDE
     Indication: PRODUCT USED FOR UNKNOWN INDICATION
     Dosage: 1 MG, TID
     Route: 065
     Dates: start: 2017
  7. METHADONE [Concomitant]
     Active Substance: METHADONE HYDROCHLORIDE
     Dosage: 2.5 MG, QD
     Route: 065
  8. MIRTAZAPINE. [Concomitant]
     Active Substance: MIRTAZAPINE
     Indication: PRODUCT USED FOR UNKNOWN INDICATION
     Dosage: 30 MG, QID
     Route: 065
     Dates: start: 2017
  9. SYNTHROID [Concomitant]
     Active Substance: LEVOTHYROXINE SODIUM
     Indication: PRODUCT USED FOR UNKNOWN INDICATION
     Dosage: UNK
     Route: 065
  10. FIRMAGON [Concomitant]
     Active Substance: DEGARELIX ACETATE
     Indication: PRODUCT USED FOR UNKNOWN INDICATION
     Dosage: 80 MG, QMO (EVERY MONTH)
     Route: 058
  11. DECADRON [Concomitant]
     Active Substance: DEXAMETHASONE
     Indication: PRODUCT USED FOR UNKNOWN INDICATION
     Dosage: 4 MG, QID
     Route: 065
     Dates: start: 2017

REACTIONS (36)
  - Urinary tract obstruction [Unknown]
  - Thrombosis [Unknown]
  - Incoherent [Unknown]
  - Blood pressure systolic increased [Unknown]
  - Blood pressure increased [Unknown]
  - Injection site warmth [Unknown]
  - Prostatic specific antigen increased [Unknown]
  - Disorientation [Unknown]
  - Device occlusion [Unknown]
  - Malignant neoplasm progression [Recovering/Resolving]
  - Syncope [Unknown]
  - Prostatic haemorrhage [Recovered/Resolved]
  - Rectal haemorrhage [Recovering/Resolving]
  - Peripheral swelling [Recovering/Resolving]
  - Weight decreased [Unknown]
  - Breakthrough pain [Unknown]
  - Body temperature decreased [Unknown]
  - Injection site erythema [Unknown]
  - Abdominal discomfort [Recovered/Resolved]
  - Constipation [Unknown]
  - Haemoglobin decreased [Unknown]
  - Haemorrhoids [Unknown]
  - Blister [Unknown]
  - Erythema [Unknown]
  - Asthenia [Unknown]
  - Renal impairment [Fatal]
  - Hydronephrosis [Fatal]
  - Dehydration [Unknown]
  - Urine output decreased [Fatal]
  - Haemorrhage urinary tract [Unknown]
  - Chromaturia [Recovered/Resolved]
  - Prostate induration [Unknown]
  - Pallor [Unknown]
  - Herpes zoster [Unknown]
  - Decreased appetite [Unknown]
  - Rash [Unknown]

NARRATIVE: CASE EVENT DATE: 20140916
